APPROVED DRUG PRODUCT: ELCYS
Active Ingredient: CYSTEINE HYDROCHLORIDE
Strength: 500MG/10ML (50MG/ML)
Dosage Form/Route: SOLUTION;INTRAVENOUS
Application: N210660 | Product #001
Applicant: EXELA PHARMA SCIENCES LLC
Approved: Apr 16, 2019 | RLD: Yes | RS: Yes | Type: RX

PATENTS:
Patent 11510942 | Expires: Jan 15, 2039
Patent 11969439 | Expires: Jan 15, 2039
Patent 10478453 | Expires: Jan 15, 2039
Patent 10583155 | Expires: Jan 15, 2039
Patent 10653719 | Expires: Jan 15, 2039
Patent 10918662 | Expires: Jan 15, 2039
Patent 10905713 | Expires: Jan 15, 2039
Patent 10905714 | Expires: Jan 15, 2039
Patent 11684636 | Expires: Jan 15, 2039
Patent 10933089 | Expires: Jan 15, 2039
Patent 11826383 | Expires: Jan 15, 2039
Patent 11679125 | Expires: Jan 15, 2039
Patent 11648262 | Expires: Jan 15, 2039
Patent 10912795 | Expires: Jan 15, 2039
Patent 11642370 | Expires: Jan 15, 2039
Patent 11510941 | Expires: Jan 15, 2039